FAERS Safety Report 6984559-6 (Version None)
Quarter: 2010Q3

REPORT INFORMATION
  Report Type: 
  Country: None (occurrence: None)
  Receive Date: 20100915
  Receipt Date: 20100906
  Transmission Date: 20110219
  Serious: Yes (Death)
  Sender: FDA-Public Use
  Company Number: CO-PFIZER INC-2010112792

PATIENT
  Age: 82 Year
  Sex: Female

DRUGS (2)
  1. LIPITOR [Suspect]
  2. ZOLOFT [Suspect]

REACTIONS (1)
  - DEATH [None]
